FAERS Safety Report 19795028 (Version 1)
Quarter: 2021Q3

REPORT INFORMATION
  Report Type: Spontaneous
  Country: US (occurrence: US)
  Receive Date: 20210903
  Receipt Date: 20210903
  Transmission Date: 20211014
  Serious: No
  Sender: FDA-Public Use
  Company Number: None

PATIENT
  Age: 74 Year
  Sex: Female
  Weight: 49.5 kg

DRUGS (2)
  1. NO PRESCRIPTION PRODUCTS [Concomitant]
  2. REGEN?COV [Suspect]
     Active Substance: CASIRIVIMAB\IMDEVIMAB
     Indication: COVID-19
     Route: 041

REACTIONS (5)
  - Chest pain [None]
  - Infusion related reaction [None]
  - Dyspnoea [None]
  - Dizziness [None]
  - Chills [None]

NARRATIVE: CASE EVENT DATE: 20210903
